FAERS Safety Report 4916664-X (Version None)
Quarter: 2006Q1

REPORT INFORMATION
  Report Type: 
  Country: None (occurrence: None)
  Receive Date: 20060216
  Receipt Date: 20060216
  Transmission Date: 20060701
  Serious: Yes (Hospitalization)
  Sender: FDA-Public Use
  Company Number: None

PATIENT
  Age: 88 Year
  Sex: Male
  Weight: 89.8122 kg

DRUGS (2)
  1. WARFARIN  10 MG  Q DAY [Suspect]
     Indication: COAGULOPATHY
     Dosage: LAST DOSE ADJUSTMENT WAS 9/23/05
     Dates: end: 20050923
  2. WARFARIN  10 MG  Q DAY [Suspect]
     Indication: PROSTATE CANCER METASTATIC
     Dosage: LAST DOSE ADJUSTMENT WAS 9/23/05
     Dates: end: 20050923

REACTIONS (3)
  - HAEMATURIA [None]
  - INCORRECT DOSE ADMINISTERED [None]
  - INTERNATIONAL NORMALISED RATIO INCREASED [None]
